FAERS Safety Report 5326659-2 (Version None)
Quarter: 2007Q2

REPORT INFORMATION
  Report Type: 
  Country: None (occurrence: None)
  Receive Date: 20070516
  Receipt Date: 20070504
  Transmission Date: 20071010
  Serious: Yes (Other)
  Sender: FDA-Public Use
  Company Number: US-PFIZER INC-2006068928

PATIENT
  Sex: Male

DRUGS (1)
  1. VIAGRA [Suspect]
     Indication: ERECTILE DYSFUNCTION
     Route: 048

REACTIONS (8)
  - BLINDNESS [None]
  - BLINDNESS UNILATERAL [None]
  - CATARACT [None]
  - OPTIC ISCHAEMIC NEUROPATHY [None]
  - PHOTOPSIA [None]
  - RETINAL VEIN OCCLUSION [None]
  - VISION BLURRED [None]
  - VISUAL FIELD DEFECT [None]
